FAERS Safety Report 12073924 (Version 3)
Quarter: 2016Q1

REPORT INFORMATION
  Report Type: Spontaneous
  Country: US (occurrence: US)
  Receive Date: 20160212
  Receipt Date: 20160310
  Transmission Date: 20160526
  Serious: Yes (Hospitalization)
  Sender: FDA-Public Use
  Company Number: US-VERTEX PHARMACEUTICALS-2016-000686

PATIENT
  Age: 46 Year
  Sex: Female
  Weight: 63 kg

DRUGS (20)
  1. ZITHROMAX [Concomitant]
     Active Substance: AZITHROMYCIN DIHYDRATE
     Indication: CYSTIC FIBROSIS
     Dosage: UNK
  2. CAYSTON [Concomitant]
     Active Substance: AZTREONAM
     Indication: CYSTIC FIBROSIS
     Dosage: UNK
  3. NEURONTIN [Concomitant]
     Active Substance: GABAPENTIN
     Indication: MENTAL DISORDER
     Dosage: UNK
     Dates: end: 201601
  4. SEROQUEL [Concomitant]
     Active Substance: QUETIAPINE FUMARATE
     Indication: MENTAL DISORDER
     Dosage: UNK
     Dates: end: 201601
  5. FLONASE [Concomitant]
     Active Substance: FLUTICASONE PROPIONATE
     Indication: CYSTIC FIBROSIS
     Dosage: UNK
  6. STARLIX [Concomitant]
     Active Substance: NATEGLINIDE
     Indication: CYSTIC FIBROSIS RELATED DIABETES
  7. MIRALAX [Concomitant]
     Active Substance: POLYETHYLENE GLYCOL 3350
     Indication: CONSTIPATION
     Dosage: UNK, PRN
  8. AQUADEKS [Concomitant]
     Active Substance: MINERALS\VITAMINS
     Indication: CYSTIC FIBROSIS
  9. ORKAMBI [Suspect]
     Active Substance: IVACAFTOR\LUMACAFTOR
     Indication: CYSTIC FIBROSIS
     Dosage: 2 TABS Q12 HRS
     Route: 048
     Dates: start: 201509, end: 20160204
  10. ADVAIR HFA [Concomitant]
     Active Substance: FLUTICASONE PROPIONATE\SALMETEROL XINAFOATE
     Indication: CYSTIC FIBROSIS
     Dosage: UNK
  11. MICROGESTIN [Concomitant]
     Active Substance: ETHINYL ESTRADIOL\NORETHINDRONE ACETATE
     Indication: CONTRACEPTION
  12. KLONOPIN [Concomitant]
     Active Substance: CLONAZEPAM
     Indication: MENTAL DISORDER
     Dosage: UNK
     Dates: start: 201601
  13. BUPROPION. [Concomitant]
     Active Substance: BUPROPION
     Indication: MENTAL DISORDER
     Dosage: UNK
     Dates: end: 201601
  14. CELEXA [Concomitant]
     Active Substance: CITALOPRAM HYDROBROMIDE
     Indication: MENTAL DISORDER
     Dosage: UNK
     Dates: end: 201601
  15. SELECTIVE SEROTONIN REUPTAKE INHIBITORS [Concomitant]
     Active Substance: UNSPECIFIED INGREDIENT
     Indication: MENTAL DISORDER
     Dosage: UNK
     Dates: end: 201601
  16. PERTZYE [Concomitant]
     Active Substance: PANCRELIPASE AMYLASE\PANCRELIPASE LIPASE\PANCRELIPASE PROTEASE
     Indication: CYSTIC FIBROSIS
  17. ALBUTEROL. [Concomitant]
     Active Substance: ALBUTEROL
     Indication: CYSTIC FIBROSIS
     Dosage: UNK
  18. ATROVENT [Concomitant]
     Active Substance: IPRATROPIUM BROMIDE
     Indication: CYSTIC FIBROSIS
  19. PRILOSEC [Concomitant]
     Active Substance: OMEPRAZOLE MAGNESIUM
     Indication: CYSTIC FIBROSIS
  20. TEMAZEPAM. [Concomitant]
     Active Substance: TEMAZEPAM
     Indication: MENTAL DISORDER
     Dosage: UNK
     Dates: end: 201601

REACTIONS (5)
  - Blood creatine phosphokinase increased [Unknown]
  - Mental disorder [Recovering/Resolving]
  - Hepatic enzyme increased [Recovering/Resolving]
  - Infective pulmonary exacerbation of cystic fibrosis [Recovered/Resolved]
  - Drug interaction [Recovered/Resolved]

NARRATIVE: CASE EVENT DATE: 201601
